FAERS Safety Report 5935953-3 (Version None)
Quarter: 2008Q4

REPORT INFORMATION
  Report Type: 
  Country: None (occurrence: None)
  Receive Date: 20081030
  Receipt Date: 20080918
  Transmission Date: 20090506
  Serious: No
  Sender: FDA-Public Use
  Company Number: US-BAYER-200813831BCC

PATIENT
  Age: 90 Year
  Sex: Female
  Weight: 58 kg

DRUGS (5)
  1. ALEVE (CAPLET) [Suspect]
     Indication: ARTHRALGIA
     Dosage: AS USED: 220 MG  UNIT DOSE: 220 MG
     Route: 048
     Dates: start: 20080917
  2. EQUATE ASPIRIN [Concomitant]
  3. GLUCOSAMINE CHONDROITIN [Concomitant]
  4. VITAMIN D [Concomitant]
  5. VITAMIN E [Concomitant]

REACTIONS (2)
  - ARTHRALGIA [None]
  - PAIN IN EXTREMITY [None]
